FAERS Safety Report 5691817-4 (Version None)
Quarter: 2008Q1

REPORT INFORMATION
  Report Type: 
  Country: None (occurrence: None)
  Receive Date: 20080331
  Receipt Date: 20080320
  Transmission Date: 20080703
  Serious: No
  Sender: FDA-Public Use
  Company Number: 220038J08USA

PATIENT
  Age: 11 Year
  Sex: Female
  Weight: 29.9374 kg

DRUGS (1)
  1. SAIZEN [Suspect]
     Indication: GROWTH HORMONE DEFICIENCY
     Dosage: 1.25 7 IN 1 WEEKS, SUBCUTANEOUS
     Route: 058
     Dates: start: 20071101, end: 20080221

REACTIONS (3)
  - CONDITION AGGRAVATED [None]
  - SPINAL DEFORMITY [None]
  - UNEQUAL LIMB LENGTH [None]
